FAERS Safety Report 17135150 (Version 1)
Quarter: 2019Q4

REPORT INFORMATION
  Report Type: Spontaneous
  Country: GB (occurrence: GB)
  Receive Date: 20191210
  Receipt Date: 20191210
  Transmission Date: 20200122
  Serious: Yes (Hospitalization)
  Sender: FDA-Public Use
  Company Number: GB-BAYER-2019-216372

PATIENT
  Age: 63 Year
  Sex: Female

DRUGS (6)
  1. CLINDAMYCIN. [Suspect]
     Active Substance: CLINDAMYCIN
     Dosage: UNK
     Route: 048
  2. LYMECYCLINE [Concomitant]
     Active Substance: LYMECYCLINE
     Dosage: 408 MG, QD
     Route: 048
  3. CIPROFLOXACIN. [Suspect]
     Active Substance: CIPROFLOXACIN
     Dosage: 1000 MG, UNK
     Route: 048
     Dates: end: 201910
  4. LINEZOLID. [Suspect]
     Active Substance: LINEZOLID
     Dosage: 400 MG, UNK
     Route: 048
     Dates: start: 20191009
  5. TEICOPLANIN [Suspect]
     Active Substance: TEICOPLANIN
     Dosage: 3 G, UNK
     Route: 048
     Dates: end: 201910
  6. LEVOTHYROXINE. [Concomitant]
     Active Substance: LEVOTHYROXINE
     Dosage: 100 MCG
     Route: 048

REACTIONS (1)
  - Drug reaction with eosinophilia and systemic symptoms [Not Recovered/Not Resolved]

NARRATIVE: CASE EVENT DATE: 20190904
